FAERS Safety Report 26114267 (Version 1)
Quarter: 2025Q4

REPORT INFORMATION
  Report Type: Spontaneous
  Country: US (occurrence: US)
  Receive Date: 20251202
  Receipt Date: 20251202
  Transmission Date: 20260118
  Serious: Yes (Disabling)
  Sender: PFIZER
  Company Number: US-PFIZER INC-PV202400018790

PATIENT
  Age: 84 Year
  Sex: Female
  Weight: 77.11 kg

DRUGS (2)
  1. PREMARIN [Suspect]
     Active Substance: ESTROGENS, CONJUGATED
     Indication: Vaginal odour
     Dosage: UNK
     Dates: start: 1974
  2. PREMARIN [Suspect]
     Active Substance: ESTROGENS, CONJUGATED
     Dosage: TAKE 1 TABLET (0.3 MG TOTAL) 1 TIME EACH DAY. TAKE DAILY FOR 21 DAYS THEN DO NOT TAKE FOR 7 DAYS
     Route: 048
     Dates: start: 20251124

REACTIONS (2)
  - Mobility decreased [Unknown]
  - Off label use [Unknown]
